FAERS Safety Report 13001293 (Version 4)
Quarter: 2017Q1

REPORT INFORMATION
  Report Type: Report from Study
  Country: US (occurrence: US)
  Receive Date: 20161206
  Receipt Date: 20170228
  Transmission Date: 20170428
  Serious: Yes (Other)
  Sender: FDA-Public Use
  Company Number: PHEH2016US031476

PATIENT
  Age: 5 Year
  Sex: Female
  Weight: 16.8 kg

DRUGS (2)
  1. ILARIS [Suspect]
     Active Substance: CANAKINUMAB
     Indication: HYPER IGD SYNDROME
     Dosage: 70 MG, Q4 WEEKS
     Route: 058
     Dates: start: 20161130
  2. ILARIS [Suspect]
     Active Substance: CANAKINUMAB
     Indication: CRYOPYRIN ASSOCIATED PERIODIC SYNDROME
     Dosage: 40 MG, Q6 WEEK (EVERY 6 WEEKS)
     Route: 058
     Dates: start: 201510, end: 20161122

REACTIONS (9)
  - Pharyngitis streptococcal [Recovered/Resolved]
  - Pyrexia [Recovered/Resolved]
  - Pyrexia [Recovered/Resolved]
  - Pain [Unknown]
  - Incorrect dose administered [Unknown]
  - Malaise [Unknown]
  - Ear infection [Recovered/Resolved]
  - Headache [Unknown]
  - Varicella [Unknown]

NARRATIVE: CASE EVENT DATE: 20161115
